FAERS Safety Report 7606252-9 (Version None)
Quarter: 2011Q3

REPORT INFORMATION
  Report Type: 
  Country: None (occurrence: None)
  Receive Date: 20110713
  Receipt Date: 20110629
  Transmission Date: 20111222
  Serious: Yes (Hospitalization, Other)
  Sender: FDA-Public Use
  Company Number: US-BAYER-201016516NA

PATIENT
  Age: 38 Year
  Sex: Female
  Weight: 68 kg

DRUGS (3)
  1. YAZ [Suspect]
     Indication: PRODUCT USED FOR UNKNOWN INDICATION
     Dosage: UNK
     Route: 048
     Dates: start: 20020624, end: 20080317
  2. YASMIN [Suspect]
     Indication: PRODUCT USED FOR UNKNOWN INDICATION
     Dosage: UNK
     Route: 048
     Dates: start: 20020624, end: 20080317
  3. AMBIEN [Concomitant]
     Dosage: 5 MG, QD

REACTIONS (3)
  - HEMIPARESIS [None]
  - DYSPHAGIA [None]
  - CEREBROVASCULAR ACCIDENT [None]
